FAERS Safety Report 7794781-7 (Version None)
Quarter: 2011Q3

REPORT INFORMATION
  Report Type: 
  Country: None (occurrence: None)
  Receive Date: 20110930
  Receipt Date: 20110916
  Transmission Date: 20111222
  Serious: Yes (Life-Threatening, Hospitalization, Other)
  Sender: FDA-Public Use
  Company Number: TPA2011A02748

PATIENT
  Age: 85 Year
  Sex: Male

DRUGS (8)
  1. ADENURI C (FEBUXOSTAT) [Suspect]
     Indication: GOUT
     Dosage: 80 MG (80 MG) ORAL
     Route: 048
     Dates: start: 20110111, end: 20110323
  2. ZOFENIL (ZOFENOPRIL) [Concomitant]
  3. VOLTAREN [Concomitant]
  4. STAGID (METFORMIN EMBONATE) [Concomitant]
  5. LOGIMAX (FELODIPINE, METOPROLOL SUCCINATE) [Concomitant]
  6. LESCOL [Concomitant]
  7. COLCHIMAX (COLCHICINE, DICYCLOVERINE HYDROCHLORIDE) [Concomitant]
  8. DIAMICRON (GLICLAZIDE) [Concomitant]

REACTIONS (6)
  - ATRIAL FIBRILLATION [None]
  - CARDIAC FAILURE [None]
  - ARRHYTHMIA [None]
  - PULMONARY OEDEMA [None]
  - BLOOD PRESSURE INCREASED [None]
  - AORTIC VALVE INCOMPETENCE [None]
